FAERS Safety Report 7943294-8 (Version None)
Quarter: 2011Q4

REPORT INFORMATION
  Report Type: 
  Country: None (occurrence: None)
  Receive Date: 20111128
  Receipt Date: 20111104
  Transmission Date: 20120403
  Serious: No
  Sender: FDA-Public Use
  Company Number: US-ROXANE LABORATORIES, INC.-2011-RO-01606RO

PATIENT
  Age: 39 Year
  Sex: Female

DRUGS (4)
  1. LITHIUM CARBONATE [Suspect]
     Indication: BIPOLAR DISORDER
     Dosage: 900 MG
  2. KLONOPIN [Concomitant]
  3. LYBREL [Concomitant]
     Indication: CONTRACEPTION
  4. PROZAC [Concomitant]

REACTIONS (1)
  - METRORRHAGIA [None]
